FAERS Safety Report 20230727 (Version 1)
Quarter: 2021Q4

REPORT INFORMATION
  Report Type: Spontaneous
  Country: US (occurrence: US)
  Receive Date: 20211227
  Receipt Date: 20211227
  Transmission Date: 20220304
  Serious: Yes (Other)
  Sender: FDA-Public Use
  Company Number: US-NOVOPROD-878587

PATIENT
  Sex: Female

DRUGS (3)
  1. NOVOLOG [Suspect]
     Active Substance: INSULIN ASPART
     Indication: Neonatal diabetes mellitus
     Dosage: 10 U
     Route: 065
  2. LANTUS [Concomitant]
     Active Substance: INSULIN GLARGINE
     Indication: Neonatal diabetes mellitus
     Dosage: UNK
  3. GLYBURIDE [Concomitant]
     Active Substance: GLYBURIDE
     Dosage: 0.2MG/KG/DAY

REACTIONS (2)
  - Hypoglycaemia neonatal [Unknown]
  - Product use issue [Unknown]
